FAERS Safety Report 13296889 (Version 1)
Quarter: 2017Q1

REPORT INFORMATION
  Report Type: Spontaneous
  Country: US (occurrence: US)
  Receive Date: 20170306
  Receipt Date: 20170306
  Transmission Date: 20170428
  Serious: Yes (Other)
  Sender: FDA-Public Use
  Company Number: US-TEVA-694545USA

PATIENT
  Age: 69 Year
  Sex: Female

DRUGS (1)
  1. TAMOXIFEN [Suspect]
     Active Substance: TAMOXIFEN
     Indication: CARCINOMA IN SITU
     Route: 048
     Dates: start: 20160514, end: 20160908

REACTIONS (3)
  - Vaginal haemorrhage [Recovered/Resolved]
  - Postmenopausal haemorrhage [Recovered/Resolved]
  - Endometrial thickening [Unknown]

NARRATIVE: CASE EVENT DATE: 20160901
